FAERS Safety Report 15230338 (Version 13)
Quarter: 2025Q1

REPORT INFORMATION
  Report Type: Report from Study
  Country: US (occurrence: US)
  Receive Date: 20180802
  Receipt Date: 20250219
  Transmission Date: 20250409
  Serious: Yes (Other)
  Sender: EMD SERONO INC
  Company Number: US-MERCK KGAA-E2B_80090844

PATIENT
  Age: 56 Year
  Sex: Female

DRUGS (2)
  1. REBIF [Suspect]
     Active Substance: INTERFERON BETA-1A
     Indication: Multiple sclerosis
     Dates: start: 20070125
  2. REBIF [Suspect]
     Active Substance: INTERFERON BETA-1A

REACTIONS (23)
  - Loss of consciousness [Recovered/Resolved]
  - Blindness transient [Unknown]
  - Deafness [Unknown]
  - Retinal detachment [Recovering/Resolving]
  - White blood cell count decreased [Recovering/Resolving]
  - Decreased immune responsiveness [Recovering/Resolving]
  - Dyspnoea [Unknown]
  - Memory impairment [Unknown]
  - Venous occlusion [Unknown]
  - Injection site pain [Unknown]
  - Injection site bruising [Recovered/Resolved]
  - Injection site mass [Unknown]
  - Multiple sclerosis pseudo relapse [Unknown]
  - Balance disorder [Not Recovered/Not Resolved]
  - Anxiety [Unknown]
  - Oral herpes [Unknown]
  - Chest discomfort [Unknown]
  - Nasopharyngitis [Unknown]
  - Hypersomnia [Unknown]
  - Dry throat [Unknown]
  - Hypoaesthesia [Unknown]
  - Depression [Unknown]
  - Inappropriate schedule of product administration [Unknown]

NARRATIVE: CASE EVENT DATE: 20070101
